FAERS Safety Report 20140692 (Version 1)
Quarter: 2021Q4

REPORT INFORMATION
  Report Type: Spontaneous
  Country: BR (occurrence: BR)
  Receive Date: 20211202
  Receipt Date: 20211202
  Transmission Date: 20220303
  Serious: Yes (Other)
  Sender: FDA-Public Use
  Company Number: BR-NOVARTISPH-NVSC2020BR011994

PATIENT
  Sex: Female
  Weight: 70 kg

DRUGS (2)
  1. TIMOLOL\TRAVOPROST [Suspect]
     Active Substance: TIMOLOL\TRAVOPROST
     Indication: Glaucoma
     Dosage: 1 DRP, QD (IN EACH EYE) (STARTED 10 YEARS AGO)
     Route: 031
  2. AZOPT [Concomitant]
     Active Substance: BRINZOLAMIDE
     Indication: Glaucoma
     Dosage: 1 DRP, QD (STRATED 3 MONTHS AGO STOPPED 2 MONTHS AGO)
     Route: 031

REACTIONS (1)
  - Tendon rupture [Recovering/Resolving]
